FAERS Safety Report 5871204-6 (Version None)
Quarter: 2008Q3

REPORT INFORMATION
  Report Type: 
  Country: None (occurrence: None)
  Receive Date: 20080829
  Receipt Date: 20080819
  Transmission Date: 20090109
  Serious: No
  Sender: FDA-Public Use
  Company Number: APP200800762

PATIENT
  Age: 77 Year
  Sex: Female

DRUGS (11)
  1. VANCOMYCIN HYDROCHLORIDE [Suspect]
     Indication: FEBRILE NEUTROPENIA
  2. CEFEPIME [Suspect]
     Indication: FEBRILE NEUTROPENIA
  3. TOSUFLOXACIN (TOSUFLOXACIN) [Suspect]
     Indication: FEBRILE NEUTROPENIA
  4. MEROPENEM (MEROPENEM) [Suspect]
     Indication: FEBRILE NEUTROPENIA
  5. CIPROFLOXACIN [Suspect]
     Indication: FEBRILE NEUTROPENIA
  6. FLUCONAZOLE [Suspect]
     Indication: FEBRILE NEUTROPENIA
  7. MICAFUNGIN (MICAFUNGIN) [Suspect]
     Indication: FEBRILE NEUTROPENIA
  8. ALLOPURINOL [Suspect]
     Indication: PROPHYLAXIS
  9. ALLOPURINOL [Suspect]
     Indication: TUMOUR LYSIS SYNDROME
  10. CYTARABINE [Concomitant]
  11. IDARUBICIN HCL [Concomitant]

REACTIONS (9)
  - CONDITION AGGRAVATED [None]
  - DRUG HYPERSENSITIVITY [None]
  - DRUG RASH WITH EOSINOPHILIA AND SYSTEMIC SYMPTOMS [None]
  - HEPATIC FUNCTION ABNORMAL [None]
  - HYPOGAMMAGLOBULINAEMIA [None]
  - IMMUNOSUPPRESSION [None]
  - LEUKOCYTOSIS [None]
  - NECROSIS [None]
  - VIRAL INFECTION [None]
